FAERS Safety Report 20157702 (Version 1)
Quarter: 2021Q4

REPORT INFORMATION
  Report Type: Spontaneous
  Country: US (occurrence: US)
  Receive Date: 20211207
  Receipt Date: 20211207
  Transmission Date: 20220303
  Serious: Yes (Death, Hospitalization)
  Sender: FDA-Public Use
  Company Number: US-CELGENE-USA-20211201270

PATIENT
  Age: 76 Year
  Sex: Male

DRUGS (11)
  1. POMALYST [Suspect]
     Active Substance: POMALIDOMIDE
     Indication: Plasma cell myeloma in remission
     Dosage: 4 MILLIGRAM
     Route: 048
     Dates: start: 201305
  2. POMALYST [Suspect]
     Active Substance: POMALIDOMIDE
     Dosage: 6 MILLIGRAM
     Route: 048
     Dates: start: 201506
  3. POMALYST [Suspect]
     Active Substance: POMALIDOMIDE
     Dosage: 2 MILLIGRAM
     Route: 048
     Dates: start: 201602
  4. POMALYST [Suspect]
     Active Substance: POMALIDOMIDE
     Dosage: 4 MILLIGRAM
     Route: 048
     Dates: start: 201604
  5. POMALYST [Suspect]
     Active Substance: POMALIDOMIDE
     Dosage: 2MG-4MG
     Route: 048
     Dates: start: 201706
  6. POMALYST [Suspect]
     Active Substance: POMALIDOMIDE
     Dosage: 3MG-4MG
     Route: 048
     Dates: start: 201711
  7. POMALYST [Suspect]
     Active Substance: POMALIDOMIDE
     Dosage: 6MG-4MG
     Route: 048
     Dates: start: 201808
  8. POMALYST [Suspect]
     Active Substance: POMALIDOMIDE
     Dosage: 5MG-4MG
     Route: 048
     Dates: start: 201810
  9. POMALYST [Suspect]
     Active Substance: POMALIDOMIDE
     Dosage: 3 MILLIGRAM
     Route: 048
     Dates: start: 201903
  10. POMALYST [Suspect]
     Active Substance: POMALIDOMIDE
     Dosage: 3 MILLIGRAM
     Route: 048
     Dates: start: 2020
  11. POMALYST [Suspect]
     Active Substance: POMALIDOMIDE
     Dosage: 3 MILLIGRAM
     Route: 048
     Dates: start: 202103, end: 202110

REACTIONS (2)
  - Death [Fatal]
  - Localised infection [Unknown]

NARRATIVE: CASE EVENT DATE: 20211203
